FAERS Safety Report 10302561 (Version 1)
Quarter: 2014Q3

REPORT INFORMATION
  Report Type: Spontaneous
  Country: US (occurrence: US)
  Receive Date: 20140714
  Receipt Date: 20140714
  Transmission Date: 20150326
  Serious: Yes (Other)
  Sender: FDA-Public Use
  Company Number: US-TEVA-493381USA

PATIENT
  Sex: Male

DRUGS (1)
  1. ACICLOVIR [Suspect]
     Active Substance: ACYCLOVIR
     Dosage: 4000 MILLIGRAM DAILY;

REACTIONS (3)
  - Mental impairment [Unknown]
  - Hallucination [Unknown]
  - Amnesia [Unknown]
